FAERS Safety Report 25980199 (Version 1)
Quarter: 2025Q4

REPORT INFORMATION
  Report Type: Spontaneous
  Country: US (occurrence: None)
  Receive Date: 20251030
  Receipt Date: 20251030
  Transmission Date: 20260117
  Serious: Yes (Hospitalization)
  Sender: FDA-CTU
  Company Number: None

PATIENT
  Sex: Female

DRUGS (8)
  1. COSENTYX [Suspect]
     Active Substance: SECUKINUMAB
     Indication: Ankylosing spondylitis
     Dosage: INJECT 2 PENS UNDER THE SKIN (SUBCUTANEOUS INJECTION) EVERY 28 DAYS?
     Route: 058
     Dates: start: 20170908
  2. ATENOLOL TAB 25MG [Concomitant]
  3. CRESTOR [Concomitant]
     Active Substance: ROSUVASTATIN CALCIUM
  4. CYMBALTA CAP 20MG [Concomitant]
  5. GABAPENTIN [Concomitant]
     Active Substance: GABAPENTIN
  6. LEVOTHYROXIN TAB 50MCG [Concomitant]
  7. PANTOPRAZOLE SODIUM [Concomitant]
     Active Substance: PANTOPRAZOLE SODIUM
  8. SULFASALAZIN TAB SOOMG [Concomitant]

REACTIONS (4)
  - Ankylosing spondylitis [None]
  - Fatigue [None]
  - Fatigue [None]
  - Orthostatic hypotension [None]
